FAERS Safety Report 4680691-0 (Version None)
Quarter: 2005Q2

REPORT INFORMATION
  Report Type: 
  Country: None (occurrence: None)
  Receive Date: 20050603
  Receipt Date: 20050420
  Transmission Date: 20051028
  Serious: Yes (Hospitalization, Other)
  Sender: FDA-Public Use
  Company Number: 2005AP02433

PATIENT
  Age: 28454 Day
  Sex: Female
  Weight: 45 kg

DRUGS (13)
  1. IRESSA [Suspect]
     Indication: LUNG ADENOCARCINOMA
     Route: 048
     Dates: start: 20030603, end: 20030710
  2. IRESSA [Suspect]
     Route: 048
     Dates: start: 20040324, end: 20041020
  3. IRESSA [Suspect]
     Route: 048
     Dates: start: 20050304, end: 20050408
  4. VINORELBINE TARTRATE [Concomitant]
     Dosage: ONE COURSE
     Dates: start: 20000901, end: 20000901
  5. VINORELBINE TARTRATE [Concomitant]
     Dosage: FOUR COURSES
     Dates: start: 20041001, end: 20041001
  6. MEVALOTIN [Concomitant]
     Route: 048
  7. EPADEL [Concomitant]
     Route: 048
  8. PERSANTIN [Concomitant]
     Route: 048
  9. JUVELA NICOTINATE [Concomitant]
     Route: 048
  10. DILTIAZEM HCL [Concomitant]
     Route: 048
  11. DEPAS [Concomitant]
     Route: 048
  12. CISPLATIN [Concomitant]
     Dosage: ONE COURSE
     Dates: start: 20000901, end: 20000901
  13. DOCETAXEL [Concomitant]
     Dosage: FOUR COURSES
     Dates: start: 20020901, end: 20020901

REACTIONS (3)
  - HEPATIC FUNCTION ABNORMAL [None]
  - INTERSTITIAL LUNG DISEASE [None]
  - LIVER DISORDER [None]
